FAERS Safety Report 18768734 (Version 1)
Quarter: 2021Q1

REPORT INFORMATION
  Report Type: Spontaneous
  Country: CN (occurrence: CN)
  Receive Date: 20210121
  Receipt Date: 20210121
  Transmission Date: 20210419
  Serious: Yes (Hospitalization, Disabling, Other)
  Sender: FDA-Public Use
  Company Number: CN-PURDUE-USA-2021-0199050

PATIENT
  Age: 59 Year
  Sex: Male

DRUGS (6)
  1. OXYCONTIN [Suspect]
     Active Substance: OXYCODONE HYDROCHLORIDE
     Indication: CANCER PAIN
     Dosage: 40 MG, Q12H
     Route: 048
     Dates: start: 20201230
  2. OXYCONTIN [Suspect]
     Active Substance: OXYCODONE HYDROCHLORIDE
     Dosage: 40 MG, Q12H
     Route: 048
     Dates: start: 20201223, end: 20201224
  3. IMRECOXIB. [Concomitant]
     Active Substance: IMRECOXIB
     Indication: CANCER PAIN
     Dosage: 0.1 G, PRN
     Route: 048
     Dates: start: 20201230
  4. IMRECOXIB. [Concomitant]
     Active Substance: IMRECOXIB
     Dosage: 0.1 G, BID
     Route: 048
     Dates: start: 20201223, end: 20201229
  5. OXYCONTIN [Suspect]
     Active Substance: OXYCODONE HYDROCHLORIDE
     Dosage: 50 MG, Q12H
     Route: 048
     Dates: start: 20201225, end: 20201227
  6. OXYCONTIN [Suspect]
     Active Substance: OXYCODONE HYDROCHLORIDE
     Dosage: 60 MG, Q12H
     Route: 048
     Dates: start: 20201228, end: 20201229

REACTIONS (9)
  - Somnolence [Recovering/Resolving]
  - Abnormal behaviour [Recovering/Resolving]
  - Communication disorder [Recovering/Resolving]
  - Memory impairment [Recovering/Resolving]
  - Confusional state [Unknown]
  - Hypersomnia [Unknown]
  - Insomnia [Unknown]
  - Bradyphrenia [Unknown]
  - Hallucination [Recovering/Resolving]

NARRATIVE: CASE EVENT DATE: 20201225
